FAERS Safety Report 5863801-9 (Version None)
Quarter: 2008Q3

REPORT INFORMATION
  Report Type: 
  Country: None (occurrence: None)
  Receive Date: 20080827
  Receipt Date: 20080822
  Transmission Date: 20090109
  Serious: Yes (Life-Threatening, Hospitalization)
  Sender: FDA-Public Use
  Company Number: SP02026

PATIENT
  Age: 46 Year
  Sex: Female
  Weight: 86.637 kg

DRUGS (1)
  1. OSMOPREP [Suspect]
     Indication: COLONOSCOPY
     Dosage: ORAL
     Route: 048
     Dates: start: 20080728

REACTIONS (10)
  - BLOOD MAGNESIUM DECREASED [None]
  - BLOOD POTASSIUM DECREASED [None]
  - CARDIAC ARREST [None]
  - CHEST PAIN [None]
  - HYPERSENSITIVITY [None]
  - HYPERVENTILATION [None]
  - MUSCLE CONTRACTURE [None]
  - PAIN [None]
  - TETANY [None]
  - VENTRICULAR FIBRILLATION [None]
